FAERS Safety Report 5235187-4 (Version None)
Quarter: 2007Q1

REPORT INFORMATION
  Report Type: 
  Country: None (occurrence: None)
  Receive Date: 20070208
  Receipt Date: 20070208
  Transmission Date: 20070707
  Serious: No
  Sender: FDA-Public Use
  Company Number: None

PATIENT
  Age: 42 Year
  Sex: Male

DRUGS (2)
  1. FLUNISOLIDE [Suspect]
     Indication: POSTNASAL DRIP
     Dosage: 2 PUFFS QD
  2. FLUNISOLIDE [Suspect]
     Indication: RHINORRHOEA
     Dosage: 2 PUFFS QD

REACTIONS (2)
  - EPISTAXIS [None]
  - NASAL DISCOMFORT [None]
